FAERS Safety Report 7378787-8 (Version None)
Quarter: 2011Q1

REPORT INFORMATION
  Report Type: 
  Country: None (occurrence: None)
  Receive Date: 20110328
  Receipt Date: 20100331
  Transmission Date: 20110831
  Serious: Yes (Other)
  Sender: FDA-Public Use
  Company Number: PHHY2010DE90707

PATIENT
  Sex: Male

DRUGS (1)
  1. EXTAVIA [Suspect]
     Route: 058
     Dates: start: 20090412

REACTIONS (2)
  - CHILLS [None]
  - GENITAL INFECTION FUNGAL [None]
